FAERS Safety Report 6057857-0 (Version None)
Quarter: 2009Q1

REPORT INFORMATION
  Report Type: 
  Country: None (occurrence: None)
  Receive Date: 20090129
  Receipt Date: 20090121
  Transmission Date: 20090719
  Serious: Yes (Hospitalization)
  Sender: FDA-Public Use
  Company Number: FR-WYE-H05799508

PATIENT
  Sex: Male
  Weight: 69 kg

DRUGS (4)
  1. TEMSIROLIMUS [Suspect]
     Indication: RENAL CELL CARCINOMA
     Route: 042
     Dates: start: 20080703, end: 20080821
  2. GEMFIBROZIL [Concomitant]
  3. ACARBOSE [Concomitant]
  4. ATENOLOL [Concomitant]

REACTIONS (1)
  - INTERSTITIAL LUNG DISEASE [None]
